FAERS Safety Report 8516071 (Version 5)
Quarter: 2012Q4

REPORT INFORMATION
  Report Type: 
  Country: JP (occurrence: JP)
  Receive Date: 20120417
  Receipt Date: 20120905
  Transmission Date: 20130627
  Serious: Yes (Hospitalization)
  Sender: FDA-Public Use
  Company Number: JP-B.I. PHARMACEUTICALS,INC./RIDGEFIELD-2012-BP-06780NB

PATIENT
  Age: 72 Year
  Sex: Female
  Weight: 44 kg

DRUGS (5)
  1. PRAZAXA [Suspect]
     Indication: THROMBOSIS PROPHYLAXIS
     Dosage: 220 mg
     Route: 048
     Dates: start: 20111023
  2. MICARDIS [Concomitant]
     Dosage: 40 mg
     Route: 065
  3. LIPITOR [Concomitant]
     Dosage: 20 mg
     Route: 065
  4. PLATIBIT [Concomitant]
     Route: 065
  5. MUCOSTA [Concomitant]
     Dosage: 300 mg
     Route: 065

REACTIONS (1)
  - Lung disorder [Not Recovered/Not Resolved]
